FAERS Safety Report 15698968 (Version 2)
Quarter: 2019Q1

REPORT INFORMATION
  Report Type: Report from Study
  Country: None (occurrence: GB)
  Receive Date: 20181207
  Receipt Date: 20190228
  Transmission Date: 20190417
  Serious: Yes (Hospitalization, Other)
  Sender: FDA-Public Use
  Company Number: GB-ABBVIE-18S-167-2577341-00

PATIENT
  Age: 69 Year
  Sex: Male

DRUGS (1)
  1. DUODOPA [Suspect]
     Active Substance: CARBIDOPA\LEVODOPA
     Indication: PARKINSON^S DISEASE
     Dosage: TITRATION DOSES ADMINISTERED IN HOSPITAL.?100ML CASSETTE 5MG/1ML 20MG/1ML CD 1.9ML/HOUR
     Route: 050

REACTIONS (10)
  - Confusional state [Not Recovered/Not Resolved]
  - Disorientation [Not Recovered/Not Resolved]
  - Amnesia [Unknown]
  - Anxiety [Not Recovered/Not Resolved]
  - Verbal abuse [Unknown]
  - Abdominal pain [Unknown]
  - Paranoia [Unknown]
  - Delirium [Unknown]
  - Malaise [Unknown]
  - Poor quality sleep [Not Recovered/Not Resolved]

NARRATIVE: CASE EVENT DATE: 201811
